FAERS Safety Report 8370994-0 (Version None)
Quarter: 2012Q2

REPORT INFORMATION
  Report Type: 
  Country: None (occurrence: None)
  Receive Date: 20120518
  Receipt Date: 20120510
  Transmission Date: 20120825
  Serious: Yes (Other)
  Sender: FDA-Public Use
  Company Number: JP-B.I. PHARMACEUTICALS,INC./RIDGEFIELD-2012-BP-10668NB

PATIENT
  Age: 78 Year
  Sex: Female

DRUGS (5)
  1. FERROUS CITRATE [Suspect]
     Indication: ANAEMIA
     Route: 048
  2. AMLODIPINE BESYLATE [Concomitant]
     Indication: HYPERTENSION
     Route: 048
  3. TRAZENTA [Suspect]
     Indication: DIABETES MELLITUS
     Dosage: 5 MG
     Route: 048
  4. MICARDIS [Concomitant]
     Indication: HYPERTENSION
     Dosage: 40 MG
     Route: 048
  5. VITAMIN C AND PREPARATIONS [Concomitant]
     Route: 048

REACTIONS (1)
  - HEPATIC CIRRHOSIS [None]
